FAERS Safety Report 15233803 (Version 2)
Quarter: 2018Q3

REPORT INFORMATION
  Report Type: Spontaneous
  Country: DE (occurrence: DE)
  Receive Date: 20180802
  Receipt Date: 20180823
  Transmission Date: 20181010
  Serious: Yes (Other)
  Sender: FDA-Public Use
  Company Number: PHHY2018DE057009

PATIENT

DRUGS (24)
  1. TRIAMTERENE. [Suspect]
     Active Substance: TRIAMTERENE
     Indication: PRODUCT USED FOR UNKNOWN INDICATION
  2. VORINOSTAT [Suspect]
     Active Substance: VORINOSTAT
     Dosage: 400 MG, UNK
     Route: 048
  3. VINCRISTINE [Suspect]
     Active Substance: VINCRISTINE
     Indication: EWING^S SARCOMA
     Dosage: UNK
     Route: 065
  4. VINCRISTINE [Suspect]
     Active Substance: VINCRISTINE
     Route: 065
  5. VINCRISTINE [Suspect]
     Active Substance: VINCRISTINE
     Dosage: UNK
     Route: 065
  6. VORINOSTAT [Suspect]
     Active Substance: VORINOSTAT
     Indication: EWING^S SARCOMA
     Dosage: 300 MG, UNK (INCREASED AFTER DISEASE PROGRESSION)
     Route: 048
  7. ARSENIC TRIOXIDE [Suspect]
     Active Substance: ARSENIC TRIOXIDE
     Indication: PRODUCT USED FOR UNKNOWN INDICATION
  8. TRIAMTERENE. [Suspect]
     Active Substance: TRIAMTERENE
     Dosage: 25 MG, UNK
     Route: 048
  9. TRETINOIN. [Suspect]
     Active Substance: TRETINOIN
     Indication: PRODUCT USED FOR UNKNOWN INDICATION
     Dosage: 25 MG/M2, UNK
     Route: 048
  10. CRIZOTINIB [Suspect]
     Active Substance: CRIZOTINIB
     Dosage: 500 MG, UNK
     Route: 048
  11. ARSENIC TRIOXIDE [Suspect]
     Active Substance: ARSENIC TRIOXIDE
     Dosage: 0.1 MG/KG, UNK
     Route: 048
  12. TRETINOIN. [Suspect]
     Active Substance: TRETINOIN
     Indication: EWING^S SARCOMA
     Dosage: 25 MG/M2, UNK
     Route: 048
  13. SORAFENIB [Suspect]
     Active Substance: SORAFENIB
     Dosage: 400 MG, UNK
     Route: 048
  14. SORAFENIB [Suspect]
     Active Substance: SORAFENIB
     Indication: EWING^S SARCOMA
     Dosage: 400 MG, UNK
     Route: 048
  15. VORINOSTAT [Suspect]
     Active Substance: VORINOSTAT
     Dosage: INCREASED AFTER DISEASE PROGRESSION
     Route: 048
  16. VORINOSTAT [Suspect]
     Active Substance: VORINOSTAT
     Dosage: 400 MG, UNK
     Route: 048
  17. ARSENIC TRIOXIDE [Suspect]
     Active Substance: ARSENIC TRIOXIDE
     Indication: EWING^S SARCOMA
  18. ARSENIC TRIOXIDE [Suspect]
     Active Substance: ARSENIC TRIOXIDE
     Route: 065
  19. TRIAMTERENE. [Suspect]
     Active Substance: TRIAMTERENE
     Indication: EWING^S SARCOMA
  20. VITAMIN E [Suspect]
     Active Substance: .ALPHA.-TOCOPHEROL
     Indication: EWING^S SARCOMA
     Dosage: 400 IE
     Route: 048
  21. PACLITAXEL. [Suspect]
     Active Substance: PACLITAXEL
     Indication: EWING^S SARCOMA
     Dosage: 200 MG/M2, UNK
     Route: 042
  22. TRETINOIN. [Suspect]
     Active Substance: TRETINOIN
     Dosage: 25 MG/M2, UNK
     Route: 048
  23. SORAFENIB [Suspect]
     Active Substance: SORAFENIB
     Indication: PRODUCT USED FOR UNKNOWN INDICATION
  24. CRIZOTINIB [Suspect]
     Active Substance: CRIZOTINIB
     Indication: EWING^S SARCOMA
     Dosage: UNK
     Route: 065

REACTIONS (5)
  - Activated partial thromboplastin time prolonged [Unknown]
  - Thrombocytopenia [Unknown]
  - Anaemia [Unknown]
  - Product use in unapproved indication [Unknown]
  - Lymphopenia [Unknown]
